FAERS Safety Report 6180028-4 (Version None)
Quarter: 2009Q2

REPORT INFORMATION
  Report Type: 
  Country: None (occurrence: None)
  Receive Date: 20090505
  Receipt Date: 20090428
  Transmission Date: 20091009
  Serious: Yes (Disabling, Other)
  Sender: FDA-Public Use
  Company Number: US-JNJCH-2009012017

PATIENT
  Age: 45 Year
  Sex: Female
  Weight: 78 kg

DRUGS (1)
  1. PURELL WITH ALOE [Suspect]
     Indication: ACCIDENTAL EXPOSURE
     Dosage: TEXT:ONCE
     Route: 047
     Dates: start: 20090427, end: 20090427

REACTIONS (4)
  - CAUSTIC INJURY [None]
  - CHEMICAL BURNS OF EYE [None]
  - INCORRECT ROUTE OF DRUG ADMINISTRATION [None]
  - VISION BLURRED [None]
